FAERS Safety Report 11335239 (Version 1)
Quarter: 2015Q3

REPORT INFORMATION
  Report Type: Spontaneous
  Country: DE (occurrence: DE)
  Receive Date: 20150804
  Receipt Date: 20150804
  Transmission Date: 20151125
  Serious: Yes (Death, Other)
  Sender: FDA-Public Use
  Company Number: DE-SA-2015SA101031

PATIENT
  Age: 45 Year
  Sex: Male
  Weight: 95 kg

DRUGS (2)
  1. FLUDARABINE PHOSPHATE. [Suspect]
     Active Substance: FLUDARABINE PHOSPHATE
     Route: 042
     Dates: start: 20150629, end: 20150707
  2. EVOLTRA [Suspect]
     Active Substance: CLOFARABINE
     Indication: NEOPLASM MALIGNANT
     Route: 042
     Dates: start: 20150625, end: 20150629

REACTIONS (9)
  - Right ventricular failure [Unknown]
  - Acute kidney injury [Unknown]
  - Fungal sepsis [Unknown]
  - Pneumonia [Unknown]
  - Nephropathy toxic [Unknown]
  - Cardiomyopathy [Unknown]
  - Respiratory failure [Unknown]
  - Multi-organ failure [Fatal]
  - Pulmonary oedema [Unknown]

NARRATIVE: CASE EVENT DATE: 20150630
